FAERS Safety Report 20398577 (Version 2)
Quarter: 2022Q1

REPORT INFORMATION
  Report Type: Spontaneous
  Country: US (occurrence: US)
  Receive Date: 20220131
  Receipt Date: 20220201
  Transmission Date: 20220423
  Serious: No
  Sender: FDA-Public Use
  Company Number: US-ABBVIE-21K-163-3844130-00

PATIENT
  Age: 48 Year
  Sex: Male
  Weight: 74.910 kg

DRUGS (2)
  1. HUMIRA [Suspect]
     Active Substance: ADALIMUMAB
     Indication: Ankylosing spondylitis
     Route: 058
     Dates: start: 201906, end: 20210301
  2. HUMIRA [Suspect]
     Active Substance: ADALIMUMAB
     Indication: Colitis ulcerative

REACTIONS (2)
  - Colitis ulcerative [Not Recovered/Not Resolved]
  - Device leakage [Unknown]

NARRATIVE: CASE EVENT DATE: 20210322
